FAERS Safety Report 9863338 (Version 1)
Quarter: 2014Q1

REPORT INFORMATION
  Report Type: Spontaneous
  Country: FR (occurrence: FR)
  Receive Date: 20140203
  Receipt Date: 20140203
  Transmission Date: 20141002
  Serious: Yes (Death, Hospitalization, Other)
  Sender: FDA-Public Use
  Company Number: FR-ELI_LILLY_AND_COMPANY-FR201401008916

PATIENT
  Age: 41 Year
  Sex: Female

DRUGS (12)
  1. CYMBALTA [Suspect]
     Indication: DEPRESSION
     Dosage: 1 DF, UNKNOWN
     Route: 048
     Dates: start: 201305
  2. ALLOPURINOL [Suspect]
     Indication: HYPERURICAEMIA
     Dosage: 1 DF, UNKNOWN
     Route: 048
     Dates: start: 20130523, end: 20130630
  3. HUMALOG HUMAJECT [Concomitant]
  4. LANTUS [Concomitant]
  5. LEVOTHYROX [Concomitant]
  6. ATACAND [Concomitant]
  7. ATARAX [Concomitant]
     Indication: PRURITUS
  8. ATARAX [Concomitant]
     Indication: ALLODYNIA
  9. LASILIX [Concomitant]
     Dosage: UNK
  10. KARDEGIC                                /FRA/ [Concomitant]
  11. MOPRAL [Concomitant]
  12. DEBRIDAT [Concomitant]

REACTIONS (6)
  - Drug reaction with eosinophilia and systemic symptoms [Fatal]
  - Pancreatitis [Unknown]
  - Pyelonephritis [Unknown]
  - Splenomegaly [Not Recovered/Not Resolved]
  - Splenic infarction [Unknown]
  - Vaginal discharge [Unknown]
